FAERS Safety Report 21641663 (Version 2)
Quarter: 2022Q4

REPORT INFORMATION
  Report Type: Spontaneous
  Country: US (occurrence: US)
  Receive Date: 20221125
  Receipt Date: 20221223
  Transmission Date: 20230113
  Serious: No
  Sender: FDA-Public Use
  Company Number: US-BIOGEN-2021BI01070599

PATIENT
  Age: 34 Year
  Sex: Female

DRUGS (1)
  1. TYSABRI [Suspect]
     Active Substance: NATALIZUMAB
     Indication: Multiple sclerosis
     Dosage: INFUSED OVER ONE HOUR
     Route: 050
     Dates: start: 20201120

REACTIONS (3)
  - Prescribed underdose [Unknown]
  - Inappropriate schedule of product administration [Unknown]
  - Multiple sclerosis [Unknown]

NARRATIVE: CASE EVENT DATE: 20201120
